FAERS Safety Report 14868085 (Version 1)
Quarter: 2018Q2

REPORT INFORMATION
  Report Type: Spontaneous
  Country: US (occurrence: US)
  Receive Date: 20180509
  Receipt Date: 20180509
  Transmission Date: 20180711
  Serious: No
  Sender: FDA-Public Use
  Company Number: US-BIOGEN-2018BI00569415

PATIENT
  Sex: Female

DRUGS (1)
  1. TECFIDERA [Suspect]
     Active Substance: DIMETHYL FUMARATE
     Indication: MULTIPLE SCLEROSIS
     Route: 065
     Dates: start: 20170213, end: 20170605

REACTIONS (4)
  - Visual impairment [Not Recovered/Not Resolved]
  - Drug dose omission [Unknown]
  - Multiple sclerosis [Recovered/Resolved with Sequelae]
  - Muscular weakness [Recovered/Resolved]
